FAERS Safety Report 16045893 (Version 2)
Quarter: 2019Q2

REPORT INFORMATION
  Report Type: Report from Study
  Country: None (occurrence: NL)
  Receive Date: 20190307
  Receipt Date: 20190408
  Transmission Date: 20190711
  Serious: Yes (Hospitalization)
  Sender: FDA-Public Use
  Company Number: NL-ABBVIE-19S-114-2691368-00

PATIENT
  Sex: Female

DRUGS (1)
  1. DUODOPA [Suspect]
     Active Substance: CARBIDOPA\LEVODOPA
     Indication: PARKINSON^S DISEASE
     Dosage: MD: 2.0, CD: 4.3, ED: 3.2, CND: 3.3, END: 1.7?24 HOUR ADMINISTRATION
     Route: 050
     Dates: start: 20150406

REACTIONS (3)
  - Depressed level of consciousness [Not Recovered/Not Resolved]
  - Delirium [Not Recovered/Not Resolved]
  - Cerebrovascular accident [Not Recovered/Not Resolved]
